FAERS Safety Report 9506067 (Version 1)
Quarter: 2013Q1

REPORT INFORMATION
  Report Type: Spontaneous
  Country: US (occurrence: None)
  Receive Date: 20130305
  Receipt Date: 20130305
  Transmission Date: 20140127
  Serious: Yes (Hospitalization)
  Sender: FDA-Public Use
  Company Number: 1000040431

PATIENT
  Sex: Male

DRUGS (1)
  1. DALIRESP (ROFLUMILAST) [Suspect]

REACTIONS (1)
  - Diarrhoea [None]
